FAERS Safety Report 8560125-6 (Version None)
Quarter: 2012Q3

REPORT INFORMATION
  Report Type: 
  Country: None (occurrence: None)
  Receive Date: 20120802
  Receipt Date: 20120723
  Transmission Date: 20120928
  Serious: Yes (Other)
  Sender: FDA-Public Use
  Company Number: US-AMGEN-USASP2012046607

PATIENT
  Sex: Female

DRUGS (1)
  1. PROCRIT [Suspect]
     Indication: HAEMOGLOBIN DECREASED
     Dosage: 40000 IU, 2 TIMES/WK
     Route: 058
     Dates: start: 20120301

REACTIONS (6)
  - INCORRECT DOSE ADMINISTERED [None]
  - FATIGUE [None]
  - TREMOR [None]
  - MALAISE [None]
  - ANAEMIA [None]
  - NAUSEA [None]
